FAERS Safety Report 23768859 (Version 2)
Quarter: 2024Q3

REPORT INFORMATION
  Report Type: Report from Study
  Country: DE (occurrence: DE)
  Receive Date: 20240422
  Receipt Date: 20240727
  Transmission Date: 20241017
  Serious: Yes (Hospitalization, Other)
  Sender: UCB
  Company Number: DE-UCBSA-2024018961

PATIENT
  Sex: Female

DRUGS (2)
  1. CERTOLIZUMAB PEGOL [Suspect]
     Active Substance: CERTOLIZUMAB PEGOL
     Indication: Product used for unknown indication
     Dosage: 200 MILLIGRAM, EV 2 WEEKS(QOW)
  2. CERTOLIZUMAB PEGOL [Suspect]
     Active Substance: CERTOLIZUMAB PEGOL
     Dosage: 200 MILLIGRAM

REACTIONS (5)
  - Hiatus hernia [Recovered/Resolved]
  - Pneumonia [Recovered/Resolved]
  - Hypokalaemia [Recovered/Resolved]
  - Gastrooesophageal reflux disease [Recovered/Resolved]
  - Nephrolithiasis [Recovered/Resolved]

NARRATIVE: CASE EVENT DATE: 20230616
